FAERS Safety Report 8451812 (Version 2)
Quarter: 2014Q2

REPORT INFORMATION
  Report Type: Spontaneous
  Country: US (occurrence: None)
  Receive Date: 20120216
  Receipt Date: 20140604
  Transmission Date: 20141212
  Serious: Yes (Hospitalization)
  Sender: FDA-Public Use
  Company Number: 20110809CINRY2179

PATIENT
  Age: 19 Year
  Sex: Female

DRUGS (4)
  1. CINRYZE [Suspect]
     Indication: HEREDITARY ANGIOEDEMA
     Dosage: (1000 IU, 2 IN 1 WK), INTRAVENOUS
     Route: 042
     Dates: start: 20110802
  2. CINRYZE [Suspect]
     Indication: PROPHYLAXIS
     Dosage: (1000 IU, 2 IN 1 WK), INTRAVENOUS
     Route: 042
     Dates: start: 20110802
  3. ANTIEMETICS (ANTIEMETICS AND ANTINAUSEANTS) [Concomitant]
  4. FLU SHOT (INFLUENZA VACCINE) (INJECTION) [Concomitant]

REACTIONS (8)
  - Hereditary angioedema [None]
  - Pregnancy [None]
  - Maternal exposure during pregnancy [None]
  - Nasopharyngitis [None]
  - Nausea [None]
  - Abdominal discomfort [None]
  - Infusion related reaction [None]
  - Vomiting [None]
